FAERS Safety Report 8177294-2 (Version None)
Quarter: 2012Q1

REPORT INFORMATION
  Report Type: 
  Country: None (occurrence: None)
  Receive Date: 20120126
  Receipt Date: 20111104
  Transmission Date: 20120608
  Serious: No
  Sender: FDA-Public Use
  Company Number: PHEH2011US008934

PATIENT
  Sex: Female

DRUGS (7)
  1. AFINITOR [Suspect]
     Indication: TUBEROUS SCLEROSIS
     Dosage: 5 MG, DAILY, ORAL : 7.5 MG, DAILY
     Route: 048
     Dates: start: 20110905
  2. AFINITOR [Suspect]
     Indication: ASTROCYTOMA
     Dosage: 5 MG, DAILY, ORAL : 7.5 MG, DAILY
     Route: 048
     Dates: start: 20110905
  3. AFINITOR [Suspect]
     Indication: TUBEROUS SCLEROSIS
     Dosage: 5 MG, DAILY, ORAL : 7.5 MG, DAILY
     Route: 048
     Dates: end: 20110101
  4. AFINITOR [Suspect]
     Indication: ASTROCYTOMA
     Dosage: 5 MG, DAILY, ORAL : 7.5 MG, DAILY
     Route: 048
     Dates: end: 20110101
  5. ALBUTEROL [Concomitant]
  6. TRILEPTAL [Concomitant]
  7. POTASSIUM CHLORIDE [Concomitant]

REACTIONS (1)
  - MUSCULOSKELETAL PAIN [None]
